FAERS Safety Report 9556475 (Version 4)
Quarter: 2014Q1

REPORT INFORMATION
  Report Type: Report from Study
  Country: DE (occurrence: DE)
  Receive Date: 20130926
  Receipt Date: 20140207
  Transmission Date: 20141002
  Serious: Yes (Hospitalization)
  Sender: FDA-Public Use
  Company Number: DE-TEVA-434451USA

PATIENT
  Age: 72 Year
  Sex: Male
  Weight: 72.5 kg

DRUGS (7)
  1. BENDAMUSTINE [Suspect]
     Indication: B-CELL LYMPHOMA
     Dosage: ONCE IN 4 WEEKS
     Route: 042
     Dates: start: 20121122, end: 20130412
  2. OBINUTUZUMAB [Suspect]
     Indication: NON-HODGKIN^S LYMPHOMA UNSPECIFIED HISTOLOGY INDOLENT
     Route: 042
     Dates: start: 20121122, end: 20130613
  3. TAVEGIL [Concomitant]
     Indication: HYPERSENSITIVITY
     Dates: start: 20121122
  4. TAGAMET [Concomitant]
     Indication: NAUSEA
     Dates: start: 20121122
  5. GRANISETRON [Concomitant]
     Indication: NAUSEA
     Dates: start: 20121122
  6. PREDNISOLONE [Concomitant]
     Indication: HYPERSENSITIVITY
     Dates: start: 20121122
  7. PARACETAMOL [Concomitant]
     Indication: PAIN
     Dates: start: 20121122

REACTIONS (2)
  - Myositis [Recovered/Resolved with Sequelae]
  - Myopathy [Recovered/Resolved with Sequelae]
